FAERS Safety Report 5273585-3 (Version None)
Quarter: 2007Q1

REPORT INFORMATION
  Report Type: 
  Country: None (occurrence: None)
  Receive Date: 20070320
  Receipt Date: 20070308
  Transmission Date: 20070707
  Serious: Yes (Other)
  Sender: FDA-Public Use
  Company Number: VNL_0468_2007

PATIENT
  Sex: Male

DRUGS (3)
  1. APO-GO [Suspect]
     Dosage: 1 MG/HR CON SC
     Route: 058
     Dates: start: 20070308, end: 20070308
  2. ROTIGOTINE [Suspect]
     Dosage: DF UNK TD
     Route: 062
  3. ANTIBIOTICS [Concomitant]

REACTIONS (1)
  - HEART RATE DECREASED [None]
